FAERS Safety Report 20789448 (Version 1)
Quarter: 2022Q2

REPORT INFORMATION
  Report Type: Report from Study
  Country: US (occurrence: US)
  Receive Date: 20220505
  Receipt Date: 20220505
  Transmission Date: 20220721
  Serious: Yes (Hospitalization)
  Sender: FDA-Public Use
  Company Number: US-NOVARTISPH-NVSC2022US098535

PATIENT
  Sex: Female

DRUGS (2)
  1. ENTRESTO [Suspect]
     Active Substance: SACUBITRIL\VALSARTAN
     Indication: Dyspnoea
     Dosage: 1 DOSAGE FORM, BID (49 MG)
     Route: 065
  2. ENTRESTO [Suspect]
     Active Substance: SACUBITRIL\VALSARTAN
     Indication: Blood pressure measurement

REACTIONS (6)
  - Hypertension [Unknown]
  - Dyspnoea [Unknown]
  - Urinary tract infection [Unknown]
  - Haematuria [Unknown]
  - Urine output decreased [Unknown]
  - Blood cholesterol increased [Unknown]
